FAERS Safety Report 16484648 (Version 2)
Quarter: 2019Q4

REPORT INFORMATION
  Report Type: Spontaneous
  Country: US (occurrence: US)
  Receive Date: 20190627
  Receipt Date: 20191022
  Transmission Date: 20200122
  Serious: Yes (Hospitalization)
  Sender: FDA-Public Use
  Company Number: US-JNJFOC-20190617958

PATIENT
  Age: 70 Year
  Sex: Male

DRUGS (2)
  1. LEXAPRO [Concomitant]
     Active Substance: ESCITALOPRAM OXALATE
     Dosage: UNK
     Route: 065
  2. IMBRUVICA [Suspect]
     Active Substance: IBRUTINIB
     Indication: PRODUCT USED FOR UNKNOWN INDICATION
     Dosage: 420 MG, QD
     Route: 048

REACTIONS (6)
  - Hyperhidrosis [Unknown]
  - Contusion [Unknown]
  - Onychoclasis [Unknown]
  - Product dose omission [Unknown]
  - Fall [Unknown]
  - Diverticulitis [Unknown]

NARRATIVE: CASE EVENT DATE: 20190516
